FAERS Safety Report 13667608 (Version 2)
Quarter: 2017Q2

REPORT INFORMATION
  Report Type: Spontaneous
  Country: GB (occurrence: GB)
  Receive Date: 20170620
  Receipt Date: 20170620
  Transmission Date: 20170830
  Serious: Yes (Other)
  Sender: FDA-Public Use
  Company Number: GB-CIPLA LTD.-2017GB10522

PATIENT

DRUGS (4)
  1. CITALOPRAM [Suspect]
     Active Substance: CITALOPRAM HYDROBROMIDE
     Indication: DEPRESSION
     Dosage: 30 MG, UNK
     Route: 048
     Dates: start: 20140101, end: 20170520
  2. GABAPENTIN. [Concomitant]
     Active Substance: GABAPENTIN
     Dosage: UNK
     Route: 065
  3. GALEN LTD CO-CODAMOL [Concomitant]
     Dosage: UNK
     Route: 065
  4. BRISTOL LABS TRAMADOL [Concomitant]
     Dosage: UNK
     Route: 065

REACTIONS (1)
  - Nasal odour [Recovered/Resolved]

NARRATIVE: CASE EVENT DATE: 20140101
